FAERS Safety Report 10566570 (Version 1)
Quarter: 2014Q4

REPORT INFORMATION
  Report Type: Spontaneous
  Country: US (occurrence: US)
  Receive Date: 20141105
  Receipt Date: 20141105
  Transmission Date: 20150529
  Serious: No
  Sender: FDA-Public Use
  Company Number: US-PFIZER INC-2014304991

PATIENT
  Age: 54 Year

DRUGS (1)
  1. SUTENT [Suspect]
     Active Substance: SUNITINIB MALATE
     Indication: RENAL CANCER METASTATIC
     Dosage: 50MG QD X 28 DAYS (THEN 14 DAYS OFF THERAPY)
     Dates: start: 20140515, end: 20140921

REACTIONS (2)
  - Disease progression [Unknown]
  - Renal cancer metastatic [Unknown]
